FAERS Safety Report 5990042-7 (Version None)
Quarter: 2008Q4

REPORT INFORMATION
  Report Type: 
  Country: None (occurrence: None)
  Receive Date: 20081209
  Receipt Date: 20081201
  Transmission Date: 20090506
  Serious: Yes (Hospitalization)
  Sender: FDA-Public Use
  Company Number: IPS_01321_2008

PATIENT
  Sex: Female
  Weight: 102.0593 kg

DRUGS (6)
  1. APOKYN [Suspect]
     Indication: PARKINSON'S DISEASE
     Dosage: (0.2 ML QD SUBCUTANEOUS
     Route: 058
     Dates: start: 20081010, end: 20081101
  2. SINEMET [Concomitant]
  3. MIRAPEX [Concomitant]
  4. SELEGILINE HCL [Concomitant]
  5. TIGAN [Concomitant]
  6. INSULIN [Concomitant]

REACTIONS (3)
  - ABASIA [None]
  - PAIN IN EXTREMITY [None]
  - SOMNOLENCE [None]
